FAERS Safety Report 24764098 (Version 1)
Quarter: 2024Q4

REPORT INFORMATION
  Report Type: Spontaneous
  Country: FR (occurrence: FR)
  Receive Date: 20241223
  Receipt Date: 20241223
  Transmission Date: 20250115
  Serious: Yes (Other)
  Sender: HIKMA
  Company Number: FR-HIKMA PHARMACEUTICALS USA INC.-FR-H14001-24-11624

PATIENT
  Age: 78 Year
  Sex: Male

DRUGS (3)
  1. ALIMTA [Suspect]
     Active Substance: PEMETREXED DISODIUM
     Indication: Lung adenocarcinoma
     Dosage: 1000 MILLIGRAM, CYCLICAL
     Route: 042
     Dates: start: 20240725, end: 20240725
  2. CARBOPLATIN [Suspect]
     Active Substance: CARBOPLATIN
     Indication: Lung adenocarcinoma
     Dosage: 510MG/CYCLE
     Route: 042
     Dates: start: 20240725, end: 20240725
  3. FILGRASTIM [Suspect]
     Active Substance: FILGRASTIM
     Indication: Prophylaxis
     Dosage: UNKNOWN
     Route: 058
     Dates: start: 20240727, end: 20240731

REACTIONS (1)
  - Lichenoid keratosis [Recovering/Resolving]

NARRATIVE: CASE EVENT DATE: 20240728
